FAERS Safety Report 9462677 (Version 2)
Quarter: 2013Q3

REPORT INFORMATION
  Report Type: Spontaneous
  Country: US (occurrence: None)
  Receive Date: 20130814
  Receipt Date: 20130829
  Transmission Date: 20140515
  Serious: Yes (Other)
  Sender: FDA-Public Use
  Company Number: VAL_02679_2013

PATIENT
  Sex: Female

DRUGS (3)
  1. BROMOCRIPTINE [Suspect]
     Indication: PROLACTINOMA
     Dosage: (GRADUALLY INCREASED TO)
     Route: 048
  2. CABERGOLINE [Suspect]
     Indication: PROLACTINOMA
  3. SERTRALINE [Concomitant]

REACTIONS (10)
  - Impulse-control disorder [None]
  - Depressive symptom [None]
  - Compulsive shopping [None]
  - Increased appetite [None]
  - Feeling guilty [None]
  - Headache [None]
  - Personality disorder [None]
  - Pathological gambling [None]
  - Blood prolactin increased [None]
  - Depressed mood [None]
